FAERS Safety Report 5888079-1 (Version None)
Quarter: 2008Q3

REPORT INFORMATION
  Report Type: 
  Country: None (occurrence: None)
  Receive Date: 20080918
  Receipt Date: 20080911
  Transmission Date: 20090109
  Serious: Yes (Other)
  Sender: FDA-Public Use
  Company Number: US-MERCK-0809USA01961

PATIENT
  Sex: Male

DRUGS (2)
  1. ZOLINZA [Suspect]
     Indication: MYCOSIS FUNGOIDES
     Route: 048
  2. ANTINEOPLASTIC (UNSPECIFIED) [Concomitant]
     Route: 048

REACTIONS (1)
  - DEAFNESS [None]
